FAERS Safety Report 5634755-5 (Version None)
Quarter: 2008Q1

REPORT INFORMATION
  Report Type: 
  Country: None (occurrence: None)
  Receive Date: 20080221
  Receipt Date: 20080221
  Transmission Date: 20080703
  Serious: Yes (Hospitalization)
  Sender: FDA-Public Use
  Company Number: None

PATIENT
  Sex: Female

DRUGS (2)
  1. PROPAFENONE HCL [Suspect]
     Dosage: 150MG TID PO
     Route: 048
     Dates: start: 20080124
  2. PROPAFENONE HCL [Suspect]

REACTIONS (4)
  - DIZZINESS [None]
  - DYSPEPSIA [None]
  - HEART RATE INCREASED [None]
  - PHARMACEUTICAL PRODUCT COMPLAINT [None]
